FAERS Safety Report 11611639 (Version 1)
Quarter: 2015Q4

REPORT INFORMATION
  Report Type: Spontaneous
  Country: BR (occurrence: BR)
  Receive Date: 20151008
  Receipt Date: 20151008
  Transmission Date: 20160304
  Serious: Yes (Life-Threatening, Other)
  Sender: FDA-Public Use
  Company Number: BR-ALEXION PHARMACEUTICALS INC-A201503910

PATIENT

DRUGS (3)
  1. MAREVAN [Concomitant]
     Active Substance: WARFARIN SODIUM
     Indication: ANTICOAGULANT THERAPY
     Dosage: 1 TABLET MORNING AND 1 TABLET AND A HALF EVENING
     Route: 048
     Dates: end: 201505
  2. PURAN [Concomitant]
     Active Substance: LEVOTHYROXINE SODIUM
     Indication: HYPOTHYROIDISM
     Dosage: 75 ?G, QD
     Route: 048
  3. SOLIRIS [Suspect]
     Active Substance: ECULIZUMAB
     Indication: PAROXYSMAL NOCTURNAL HAEMOGLOBINURIA
     Dosage: UNK
     Route: 042
     Dates: start: 2011, end: 2013

REACTIONS (5)
  - Haemorrhage [Recovered/Resolved]
  - Platelet count abnormal [Unknown]
  - Pain in extremity [Not Recovered/Not Resolved]
  - Paroxysmal nocturnal haemoglobinuria [Unknown]
  - Disease recurrence [Unknown]

NARRATIVE: CASE EVENT DATE: 201505
